FAERS Safety Report 12048006 (Version 3)
Quarter: 2016Q3

REPORT INFORMATION
  Report Type: Spontaneous
  Country: AU (occurrence: AU)
  Receive Date: 20160209
  Receipt Date: 20160902
  Transmission Date: 20161109
  Serious: Yes (Hospitalization, Other)
  Sender: FDA-Public Use
  Company Number: AU-ACCORD-037767

PATIENT
  Age: 64 Year
  Sex: Female

DRUGS (10)
  1. DOCETAXEL. [Suspect]
     Active Substance: DOCETAXEL
     Indication: INVASIVE DUCTAL BREAST CARCINOMA
  2. IRBESARTAN. [Concomitant]
     Active Substance: IRBESARTAN
  3. DIGOXIN. [Concomitant]
     Active Substance: DIGOXIN
  4. WARFARIN [Concomitant]
     Active Substance: WARFARIN
  5. PREGABALIN. [Concomitant]
     Active Substance: PREGABALIN
  6. MIRTAZAPINE. [Concomitant]
     Active Substance: MIRTAZAPINE
  7. HERCEPTIN [Suspect]
     Active Substance: TRASTUZUMAB
     Indication: INVASIVE DUCTAL BREAST CARCINOMA
  8. CARBOPLATIN. [Suspect]
     Active Substance: CARBOPLATIN
     Indication: INVASIVE DUCTAL BREAST CARCINOMA
  9. ATORVASTATIN/ATORVASTATIN CALCIUM [Concomitant]
  10. METOPROLOL. [Concomitant]
     Active Substance: METOPROLOL

REACTIONS (3)
  - Posterior reversible encephalopathy syndrome [Recovered/Resolved]
  - Neutropenia [Unknown]
  - Lactic acidosis [Unknown]
